FAERS Safety Report 24117750 (Version 3)
Quarter: 2024Q4

REPORT INFORMATION
  Report Type: Spontaneous
  Country: US (occurrence: US)
  Receive Date: 20240722
  Receipt Date: 20241023
  Transmission Date: 20250115
  Serious: No
  Sender: SANOFI AVENTIS
  Company Number: US-SA-SAC20240716001129

PATIENT
  Age: 62 Year
  Sex: Female
  Weight: 73.2 kg

DRUGS (1)
  1. KEVZARA [Suspect]
     Active Substance: SARILUMAB
     Indication: Polymyalgia rheumatica
     Dosage: 200 MG, QOW
     Route: 058
     Dates: start: 20240712

REACTIONS (5)
  - Abdominal discomfort [Recovering/Resolving]
  - Palpitations [Recovered/Resolved]
  - Pain in extremity [Unknown]
  - Arthralgia [Unknown]
  - Foot fracture [Unknown]

NARRATIVE: CASE EVENT DATE: 20240101
